FAERS Safety Report 6165104-4 (Version None)
Quarter: 2009Q2

REPORT INFORMATION
  Report Type: 
  Country: None (occurrence: None)
  Receive Date: 20090421
  Receipt Date: 20090421
  Transmission Date: 20091009
  Serious: No
  Sender: FDA-Public Use
  Company Number: None

PATIENT
  Age: 15 Year
  Sex: Male
  Weight: 72.57 kg

DRUGS (1)
  1. CLINDAMYCIN PHOSPHATE [Suspect]
     Indication: STAPHYLOCOCCAL ABSCESS
     Dosage: 450 MG Q 6 H IV
     Route: 042
     Dates: start: 20090416, end: 20090416

REACTIONS (2)
  - ANGIOEDEMA [None]
  - URTICARIA [None]
